FAERS Safety Report 6528852-X (Version None)
Quarter: 2010Q1

REPORT INFORMATION
  Report Type: 
  Country: None (occurrence: None)
  Receive Date: 20100106
  Receipt Date: 20100104
  Transmission Date: 20100710
  Serious: Yes (Other)
  Sender: FDA-Public Use
  Company Number: BE-MYLANLABS-2009S1022100

PATIENT
  Age: 64 Year
  Sex: Female

DRUGS (2)
  1. ALENDRONATE SODIUM [Suspect]
     Indication: PAIN
     Route: 048
  2. ALENDRONATE SODIUM [Suspect]
     Indication: OSTEOLYSIS
     Route: 048

REACTIONS (2)
  - FEMUR FRACTURE [None]
  - IMPAIRED HEALING [None]
